FAERS Safety Report 6436480-X (Version None)
Quarter: 2009Q4

REPORT INFORMATION
  Report Type: 
  Country: None (occurrence: None)
  Receive Date: 20091111
  Receipt Date: 20091030
  Transmission Date: 20100525
  Serious: Yes (Life-Threatening, Hospitalization)
  Sender: FDA-Public Use
  Company Number: FR-PFIZER INC-2009213748

PATIENT
  Age: 57 Year
  Sex: Male
  Weight: 71 kg

DRUGS (3)
  1. SUTENT [Suspect]
     Indication: RENAL CANCER
     Dosage: 50 MG, 1X/DAY, 2 COURSES
     Dates: start: 20090218, end: 20090428
  2. PLAVIX [Concomitant]
     Dosage: UNK
     Dates: end: 20090508
  3. ARIXTRA [Concomitant]
     Dosage: UNK
     Dates: start: 20090508

REACTIONS (2)
  - ACUTE PULMONARY OEDEMA [None]
  - MYOCARDIAL INFARCTION [None]
